FAERS Safety Report 9164451 (Version 6)
Quarter: 2014Q1

REPORT INFORMATION
  Report Type: Spontaneous
  Country: US (occurrence: None)
  Receive Date: 20130221
  Receipt Date: 20140304
  Transmission Date: 20141002
  Serious: Yes (Life-Threatening, Hospitalization, Other)
  Sender: FDA-Public Use
  Company Number: ADR-2013-00285

PATIENT
  Age: 34 Year
  Sex: Female

DRUGS (2)
  1. BACLOFEN [Suspect]
     Indication: CEREBRAL PALSY
     Route: 037
  2. DILAUDID [Concomitant]

REACTIONS (38)
  - Cardiac disorder [None]
  - Impaired gastric emptying [None]
  - Abdominal distension [None]
  - Constipation [None]
  - Arthritis [None]
  - Spondylitis [None]
  - Urinary retention [None]
  - Unevaluable event [None]
  - Muscle spasms [None]
  - Coma [None]
  - Drug withdrawal syndrome [None]
  - Inadequate analgesia [None]
  - Micturition urgency [None]
  - Device related infection [None]
  - Staphylococcal infection [None]
  - Pain [None]
  - Malaise [None]
  - Drug dose omission [None]
  - Hallucination [None]
  - Pyrexia [None]
  - Vomiting [None]
  - Hypersomnia [None]
  - Respiratory disorder [None]
  - Device dislocation [None]
  - No therapeutic response [None]
  - Muscle spasticity [None]
  - Condition aggravated [None]
  - Feeling abnormal [None]
  - Pharyngitis streptococcal [None]
  - Infection [None]
  - Nausea [None]
  - Pneumonia aspiration [None]
  - Sepsis [None]
  - Escherichia test positive [None]
  - Lymphoma [None]
  - Autoimmune disorder [None]
  - Abasia [None]
  - Convulsion [None]
